FAERS Safety Report 5595943-X (Version None)
Quarter: 2008Q1

REPORT INFORMATION
  Report Type: 
  Country: None (occurrence: None)
  Receive Date: 20080118
  Receipt Date: 20080116
  Transmission Date: 20080703
  Serious: Yes (Life-Threatening)
  Sender: FDA-Public Use
  Company Number: JP-SANOFI-SYNTHELABO-F01200800076

PATIENT
  Age: 54 Year
  Sex: Female

DRUGS (4)
  1. FLUOROURACIL [Suspect]
     Route: 040
     Dates: start: 20071128, end: 20071129
  2. BEVACIZUMAB [Suspect]
     Route: 042
     Dates: start: 20071128, end: 20071128
  3. OXALIPLATIN [Suspect]
     Indication: RECTAL CANCER METASTATIC
     Route: 042
     Dates: start: 20071128, end: 20071128
  4. CALCIUM LEVOFOLINATE [Suspect]
     Route: 042
     Dates: start: 20071128, end: 20071129

REACTIONS (1)
  - TUMOUR PERFORATION [None]
